FAERS Safety Report 12962897 (Version 1)
Quarter: 2016Q4

REPORT INFORMATION
  Report Type: Report from Study
  Country: CA (occurrence: CA)
  Receive Date: 20161122
  Receipt Date: 20161122
  Transmission Date: 20170207
  Serious: Yes (Hospitalization)
  Sender: FDA-Public Use
  Company Number: CA-AMGEN-CANSL2016162564

PATIENT
  Age: 79 Year
  Sex: Female

DRUGS (9)
  1. VITAMIN C [Concomitant]
     Active Substance: ASCORBIC ACID
  2. DOXEPIN [Concomitant]
     Active Substance: DOXEPIN
  3. CLONAZEPAM. [Concomitant]
     Active Substance: CLONAZEPAM
  4. PROLIA [Suspect]
     Active Substance: DENOSUMAB
     Indication: PRODUCT USED FOR UNKNOWN INDICATION
     Dosage: UNK
     Route: 065
     Dates: start: 20160607
  5. DIGOXIN. [Concomitant]
     Active Substance: DIGOXIN
  6. CALCIUM [Concomitant]
     Active Substance: CALCIUM
  7. FUROSEMIDE. [Concomitant]
     Active Substance: FUROSEMIDE
  8. VITAMIN D [Concomitant]
     Active Substance: CHOLECALCIFEROL
  9. OMEPRAZOL [Concomitant]
     Active Substance: OMEPRAZOLE

REACTIONS (3)
  - Blood electrolytes decreased [Unknown]
  - Off label use [Unknown]
  - Full blood count decreased [Unknown]

NARRATIVE: CASE EVENT DATE: 2016
